FAERS Safety Report 6466011-X (Version None)
Quarter: 2009Q4

REPORT INFORMATION
  Report Type: 
  Country: None (occurrence: None)
  Receive Date: 20091202
  Receipt Date: 20091119
  Transmission Date: 20100525
  Serious: Yes (Other)
  Sender: FDA-Public Use
  Company Number: GB-TEVA-215793ISR

PATIENT

DRUGS (1)
  1. BISOPROLOL [Suspect]
     Indication: DRUG USE FOR UNKNOWN INDICATION

REACTIONS (2)
  - CHARLES BONNET SYNDROME [None]
  - HALLUCINATION, VISUAL [None]
